FAERS Safety Report 4887212-8 (Version None)
Quarter: 2005Q4

REPORT INFORMATION
  Report Type: 
  Country: None (occurrence: None)
  Receive Date: 20051223
  Receipt Date: 20050815
  Transmission Date: 20060501
  Serious: Yes (Disabling, Other)
  Sender: FDA-Public Use
  Company Number: US_0508120859

PATIENT
  Age: 62 Year
  Sex: Male
  Weight: 102 kg

DRUGS (2)
  1. HUMULIN N [Suspect]
     Indication: DIABETES MELLITUS
     Dates: start: 19800101, end: 20000101
  2. HUMALOG MIX 75/25 [Suspect]
     Indication: DIABETES MELLITUS
     Dates: start: 20000101

REACTIONS (10)
  - ACCIDENT AT WORK [None]
  - BALANCE DISORDER [None]
  - BLISTER [None]
  - BLOOD GLUCOSE INCREASED [None]
  - BODY HEIGHT DECREASED [None]
  - FRACTURE [None]
  - IMPAIRED HEALING [None]
  - JOINT STIFFNESS [None]
  - STRESS [None]
  - WEIGHT INCREASED [None]
